FAERS Safety Report 8909412 (Version 1)
Quarter: 2012Q4

REPORT INFORMATION
  Report Type: Report from Study
  Country: DE (occurrence: DE)
  Receive Date: 20121115
  Receipt Date: 20121115
  Transmission Date: 20130627
  Serious: Yes (Death, Hospitalization)
  Sender: FDA-Public Use
  Company Number: DE-ROCHE-591176

PATIENT
  Sex: Female
  Weight: 92 kg

DRUGS (8)
  1. RITUXIMAB [Suspect]
     Indication: RHEUMATOID ARTHRITIS
     Dosage: GIVEN ON 18 MAR 2008 AND 1 APR 2008
     Route: 042
     Dates: start: 20080318, end: 20080402
  2. METHOTREXAT [Suspect]
     Indication: RHEUMATOID ARTHRITIS
     Route: 048
  3. QUENSYL [Concomitant]
     Indication: RHEUMATOID ARTHRITIS
     Route: 048
  4. PREDNISOLON [Concomitant]
     Indication: RHEUMATOID ARTHRITIS
     Route: 048
  5. ARTHROTEC [Concomitant]
     Indication: RHEUMATOID ARTHRITIS
     Route: 048
  6. GEMZAR [Concomitant]
     Route: 065
     Dates: start: 20110210, end: 20110818
  7. GEMZAR [Concomitant]
     Route: 065
     Dates: start: 20111108
  8. ERLOTINIB [Concomitant]
     Route: 065
     Dates: start: 20111108

REACTIONS (4)
  - Small intestine carcinoma [Fatal]
  - Anaemia [Recovered/Resolved]
  - Metastasis [Fatal]
  - Metastases to lung [Fatal]
